FAERS Safety Report 9251242 (Version 1)
Quarter: 2013Q1

REPORT INFORMATION
  Report Type: Spontaneous
  Country: US (occurrence: None)
  Receive Date: 20130305
  Receipt Date: 20130305
  Transmission Date: 20140127
  Serious: Yes (Other)
  Sender: FDA-Public Use
  Company Number: 163-21880-12082725

PATIENT
  Age: 80 Year
  Sex: Female
  Weight: 65.77 kg

DRUGS (10)
  1. REVLIMID [Suspect]
     Indication: MYELODYSPLASTIC SYNDROME
     Dosage: 10MG, 21 IN 21 D, PO
     Route: 048
     Dates: start: 20120501
  2. DIGOXIN (DIGOXIN) [Concomitant]
  3. FOLIC ACID (FOLIC ACID) [Concomitant]
  4. GABAPENTIN (GABAPENTIN) [Concomitant]
  5. IMDUR (ISOSORBIDE MONONITRATE) [Concomitant]
  6. VITAMINS [Concomitant]
  7. POTASSIUM (POTASSIUM) [Concomitant]
  8. SPIRONOLACTONE (SPIRONOLACTONE) [Concomitant]
  9. TORSEMIDE [Concomitant]
  10. WAFARIN (WARFARIN) [Concomitant]

REACTIONS (2)
  - White blood cell count decreased [None]
  - Dysgeusia [None]
